FAERS Safety Report 5049606-X (Version None)
Quarter: 2006Q2

REPORT INFORMATION
  Report Type: 
  Country: None (occurrence: None)
  Receive Date: 20060614
  Receipt Date: 20060501
  Transmission Date: 20061013
  Serious: Yes (Other)
  Sender: FDA-Public Use
  Company Number: 446556

PATIENT
  Sex: Female

DRUGS (6)
  1. BONIVA [Suspect]
     Indication: OSTEOPOROSIS
     Dosage: 1 PER MONTH ORAL
     Route: 048
     Dates: start: 20050615
  2. SINGULAIR [Concomitant]
  3. ZYRTEC-D 12 HOUR [Concomitant]
  4. SPIROLACTONE (SPIRONOLACTONE) [Concomitant]
  5. ADVAIR DISKUS 100/50 [Concomitant]
  6. NASACORT [Concomitant]

REACTIONS (1)
  - PAIN IN JAW [None]
